FAERS Safety Report 5217059-4 (Version None)
Quarter: 2007Q1

REPORT INFORMATION
  Report Type: 
  Country: None (occurrence: None)
  Receive Date: 20070124
  Receipt Date: 20070116
  Transmission Date: 20070707
  Serious: Yes (Other)
  Sender: FDA-Public Use
  Company Number: CA-ROCHE-478813

PATIENT
  Age: 34 Year
  Sex: Female

DRUGS (2)
  1. XENICAL [Suspect]
     Indication: WEIGHT CONTROL
     Route: 048
     Dates: start: 20040615, end: 20040615
  2. 1 CONCOMITANT DRUG [Concomitant]
     Indication: GESTATIONAL DIABETES
     Dosage: DRUG REPORTED AS DIABETIC PILLS
     Route: 048
     Dates: start: 20010615

REACTIONS (1)
  - DIABETES MELLITUS INADEQUATE CONTROL [None]
